FAERS Safety Report 6854830-7 (Version None)
Quarter: 2010Q3

REPORT INFORMATION
  Report Type: 
  Country: None (occurrence: None)
  Receive Date: 20100717
  Receipt Date: 20080304
  Transmission Date: 20110219
  Serious: No
  Sender: FDA-Public Use
  Company Number: US-PFIZER INC-2008004391

PATIENT
  Sex: Female
  Weight: 81.8 kg

DRUGS (3)
  1. CHANTIX [Suspect]
     Indication: SMOKING CESSATION THERAPY
     Dates: start: 20080101, end: 20080105
  2. TOPROL-XL [Concomitant]
  3. NEXIUM [Concomitant]

REACTIONS (2)
  - DEPRESSION [None]
  - MALAISE [None]
